FAERS Safety Report 15439098 (Version 1)
Quarter: 2018Q3

REPORT INFORMATION
  Report Type: Spontaneous
  Country: US (occurrence: US)
  Receive Date: 20180928
  Receipt Date: 20180928
  Transmission Date: 20181010
  Serious: No
  Sender: FDA-Public Use
  Company Number: US-PFIZER INC-2018384457

PATIENT
  Age: 40 Year
  Sex: Female
  Weight: 124.7 kg

DRUGS (4)
  1. EFFEXOR XR [Suspect]
     Active Substance: VENLAFAXINE HYDROCHLORIDE
     Indication: AGITATION
     Dosage: 600 MG, DAILY
     Route: 048
  2. VENLAFAXINE HCL [Suspect]
     Active Substance: VENLAFAXINE HYDROCHLORIDE
     Indication: ANXIETY DISORDER
     Dosage: 37.5 MG, DAILY
  3. VENLAFAXINE HCL [Suspect]
     Active Substance: VENLAFAXINE HYDROCHLORIDE
     Indication: AGITATION
     Dosage: 600 MG, DAILY
     Route: 048
  4. EFFEXOR XR [Suspect]
     Active Substance: VENLAFAXINE HYDROCHLORIDE
     Indication: ANXIETY DISORDER
     Dosage: 37.5 MG, DAILY

REACTIONS (8)
  - Wrong technique in product usage process [Unknown]
  - Obesity [Unknown]
  - Drug effect decreased [Unknown]
  - Tendon injury [Unknown]
  - Overdose [Unknown]
  - Blood pressure increased [Unknown]
  - Eating disorder [Unknown]
  - Constipation [Recovered/Resolved]
